FAERS Safety Report 4407467-3 (Version None)
Quarter: 2004Q3

REPORT INFORMATION
  Report Type: 
  Country: None (occurrence: None)
  Receive Date: 20040721
  Receipt Date: 20040701
  Transmission Date: 20050211
  Serious: Yes (Hospitalization, Other)
  Sender: FDA-Public Use
  Company Number: USA040771634

PATIENT
  Age: 52 Year
  Sex: Female
  Weight: 105 kg

DRUGS (2)
  1. HUMALOG [Suspect]
     Indication: DIABETES MELLITUS
     Dates: start: 19980501
  2. ILETIN I [Suspect]
     Indication: DIABETES MELLITUS
     Dates: start: 19650101, end: 19980501

REACTIONS (15)
  - ADVERSE EVENT [None]
  - BRONCHITIS [None]
  - CARDIAC FAILURE CONGESTIVE [None]
  - CATARACT [None]
  - DEPRESSION [None]
  - DIABETIC RETINOPATHY [None]
  - FATIGUE [None]
  - HALLUCINATION [None]
  - HOARSENESS [None]
  - LOSS OF CONSCIOUSNESS [None]
  - MEDICAL DEVICE COMPLICATION [None]
  - MYOCARDIAL INFARCTION [None]
  - NEUROPATHIC ARTHROPATHY [None]
  - PHARMACEUTICAL PRODUCT COMPLAINT [None]
  - SLEEP APNOEA SYNDROME [None]
